FAERS Safety Report 4744456-3 (Version None)
Quarter: 2005Q3

REPORT INFORMATION
  Report Type: 
  Country: None (occurrence: None)
  Receive Date: 20050809
  Receipt Date: 20050801
  Transmission Date: 20060218
  Serious: Yes (Other)
  Sender: FDA-Public Use
  Company Number: 2005109098

PATIENT
  Sex: Female

DRUGS (20)
  1. DIFLUCAN [Suspect]
     Indication: PROPHYLAXIS
     Dosage: ORAL
     Route: 048
     Dates: start: 20010101
  2. DIFLUCAN [Suspect]
     Indication: VAGINAL INFECTION
     Dosage: ORAL
     Route: 048
     Dates: start: 20010101
  3. VITAMINS (VITAMINS) [Concomitant]
  4. HUMIRA [Concomitant]
  5. METHOTREXATE [Concomitant]
  6. CELEBREX [Concomitant]
  7. SYNTHROID [Concomitant]
  8. ZELNORM [Concomitant]
  9. FEMHRT [Concomitant]
  10. DITROPAN [Concomitant]
  11. MONTELUKAST SODIUM (MONTELUKAST SODIUM) [Concomitant]
  12. ADVAIR (FLUTICASONE PROPIONATE, SALMETEROL XINAFOATE) [Concomitant]
  13. NEXIUM [Concomitant]
  14. AMBIEN [Concomitant]
  15. ULTRAM [Concomitant]
  16. FOLIC ACID [Concomitant]
  17. ALL OTHER THERAPEUTIC PRODUCTS [Concomitant]
  18. NASONEX [Concomitant]
  19. MYCELEX [Concomitant]
  20. ACTONEL [Concomitant]

REACTIONS (9)
  - ARTHROPOD BITE [None]
  - BODY HEIGHT DECREASED [None]
  - CONDITION AGGRAVATED [None]
  - ECONOMIC PROBLEM [None]
  - ERYTHEMA [None]
  - IMMUNODEFICIENCY [None]
  - INFLAMMATION [None]
  - SCAR [None]
  - SINUSITIS [None]
